FAERS Safety Report 8835316 (Version 4)
Quarter: 2012Q4

REPORT INFORMATION
  Report Type: Report from Study
  Country: DE (occurrence: DE)
  Receive Date: 20121011
  Receipt Date: 20121102
  Transmission Date: 20130627
  Serious: Yes (Death, Life-Threatening, Hospitalization)
  Sender: FDA-Public Use
  Company Number: DE-PFIZER INC-2012248628

PATIENT
  Age: 60 Year
  Sex: Male
  Weight: 63.7 kg

DRUGS (9)
  1. IDARUBICIN HCL [Suspect]
     Indication: ACUTE MYELOID LEUKAEMIA
     Dosage: 20.28 mg, daily
     Dates: start: 20120927, end: 20121001
  2. CYTARABINE [Suspect]
     Indication: ACUTE MYELOID LEUKAEMIA
     Dosage: 169 mg, daily
     Dates: start: 20120927, end: 20121003
  3. ETOPOSIDE [Suspect]
     Indication: ACUTE MYELOID LEUKAEMIA
     Dosage: 169 mg, daily
     Dates: start: 20120927, end: 20120929
  4. TRETINOIN [Concomitant]
     Indication: ACUTE MYELOID LEUKAEMIA
     Dosage: 90 mg
     Dates: start: 20121002, end: 20121004
  5. TRETINOIN [Concomitant]
     Dosage: 30 mg, UNK
     Dates: start: 20121002, end: 20121004
  6. COTRIM FORTE ^HEUMANN^ [Concomitant]
     Indication: PROPHYLACTIC
     Dosage: 900 mg, daily cyclic, monday, wednesday, friday
     Route: 048
     Dates: start: 20120924
  7. ACICLOVIR [Concomitant]
     Indication: PROPHYLACTIC
     Dosage: 800 mg, daily
     Route: 048
     Dates: start: 20120924
  8. FLUCONAZOLE [Concomitant]
     Indication: PROPHYLACTIC
     Dosage: 200 mg, daily
     Route: 048
     Dates: start: 20120924
  9. TAZOBAC [Concomitant]
     Indication: CRP INCREASED
     Dosage: 12.5 mg, daily
     Route: 042
     Dates: start: 20120924, end: 20120929

REACTIONS (1)
  - Sepsis [Fatal]
